FAERS Safety Report 22266016 (Version 2)
Quarter: 2024Q1

REPORT INFORMATION
  Report Type: Report from Study
  Country: LU (occurrence: LU)
  Receive Date: 20230428
  Receipt Date: 20240314
  Transmission Date: 20240409
  Serious: Yes (Other)
  Sender: FDA-Public Use
  Company Number: None

PATIENT
  Age: 35 Year
  Sex: Female
  Weight: 80 kg

DRUGS (8)
  1. AZITHROMYCIN [Suspect]
     Active Substance: AZITHROMYCIN
     Indication: Influenza like illness
     Route: 048
     Dates: start: 20221108
  2. KARDEGIC [Concomitant]
     Active Substance: ASPIRIN DL-LYSINE
     Indication: Product used for unknown indication
     Route: 048
     Dates: start: 2022
  3. LEVOTHYROXINE [Concomitant]
     Active Substance: LEVOTHYROXINE\LEVOTHYROXINE SODIUM
     Indication: Hypothyroidism
     Route: 048
  4. COMIRNATY (TOZINAMERAN) [Suspect]
     Active Substance: TOZINAMERAN
     Indication: COVID-19 immunisation
     Dosage: TIME INTERVAL: TOTAL: R2, 30 MICROGRAMS/DOSE
     Route: 030
     Dates: start: 20220817, end: 20220817
  5. POLYETHYLENE GLYCOL 4000 [Concomitant]
     Active Substance: POLYETHYLENE GLYCOL 4000
     Indication: Product used for unknown indication
     Route: 048
  6. MUCOMYST [Suspect]
     Active Substance: ACETYLCYSTEINE
     Indication: Influenza like illness
     Route: 048
     Dates: start: 20221108
  7. DOLIPRANE [Suspect]
     Active Substance: ACETAMINOPHEN
     Indication: Influenza like illness
     Route: 048
     Dates: start: 20221108
  8. VAXIGRIP [Suspect]
     Active Substance: INFLUENZA VIRUS VACCINE
     Indication: Influenza immunisation
     Dosage: TIME INTERVAL: TOTAL
     Route: 030
     Dates: start: 20221104, end: 20221104

REACTIONS (2)
  - Foetal death [Not Recovered/Not Resolved]
  - Vaccination failure [Recovered/Resolved]

NARRATIVE: CASE EVENT DATE: 20221109
